FAERS Safety Report 6148925-3 (Version None)
Quarter: 2009Q2

REPORT INFORMATION
  Report Type: 
  Country: None (occurrence: None)
  Receive Date: 20090407
  Receipt Date: 20090330
  Transmission Date: 20091009
  Serious: Yes (Life-Threatening, Other)
  Sender: FDA-Public Use
  Company Number: 2009SP006826

PATIENT
  Age: 13 Year
  Sex: Male

DRUGS (1)
  1. PROVENTIL-HFA [Suspect]
     Indication: ASTHMA
     Dosage: PO
     Route: 048

REACTIONS (5)
  - FOREIGN BODY TRAUMA [None]
  - HYPOPHAGIA [None]
  - OROPHARYNGEAL PAIN [None]
  - SCRATCH [None]
  - VOMITING [None]
